FAERS Safety Report 24285625 (Version 5)
Quarter: 2024Q4

REPORT INFORMATION
  Report Type: Report from Study
  Country: MX (occurrence: MX)
  Receive Date: 20240905
  Receipt Date: 20241211
  Transmission Date: 20250114
  Serious: Yes (Other)
  Sender: NOVARTIS
  Company Number: MX-002147023-NVSC2022MX006515

PATIENT
  Sex: Female

DRUGS (7)
  1. TASIGNA [Suspect]
     Active Substance: NILOTINIB
     Indication: Chronic myeloid leukaemia
     Dosage: UNK UNK, Q12H
     Route: 048
  2. TASIGNA [Suspect]
     Active Substance: NILOTINIB
     Dosage: Q12H (1 MG WAS NOT SAID)
     Route: 048
  3. TASIGNA [Suspect]
     Active Substance: NILOTINIB
     Dosage: 2 DOSAGE FORM (200 MG), Q12H
     Route: 048
  4. TASIGNA [Suspect]
     Active Substance: NILOTINIB
     Dosage: 400 MG, Q24H, EVERY 24 HOURS
     Route: 065
     Dates: start: 20240827
  5. IMATINIB [Suspect]
     Active Substance: IMATINIB
     Indication: Chronic myeloid leukaemia
     Dosage: 200 MG, Q12H
     Route: 048
     Dates: start: 20240827
  6. IMATINIB [Suspect]
     Active Substance: IMATINIB
     Dosage: 2 DOSAGE FORM, Q12H
     Route: 065
  7. LEVOTHYROXINE [Concomitant]
     Active Substance: LEVOTHYROXINE
     Indication: Surgery
     Dosage: 2 DOSAGE FORM, Q24H
     Route: 065
     Dates: start: 20230706

REACTIONS (50)
  - Paralysis [Recovering/Resolving]
  - Angina pectoris [Unknown]
  - Chronic myeloid leukaemia [Not Recovered/Not Resolved]
  - Malignant neoplasm progression [Not Recovered/Not Resolved]
  - Blindness [Unknown]
  - Eye irritation [Recovering/Resolving]
  - Splenomegaly [Unknown]
  - Oral disorder [Unknown]
  - Yellow skin [Unknown]
  - Skin irritation [Unknown]
  - Feeling abnormal [Unknown]
  - Blood viscosity decreased [Unknown]
  - Hair texture abnormal [Unknown]
  - Dry throat [Unknown]
  - Electrocardiogram abnormal [Unknown]
  - Foreign body sensation in eyes [Unknown]
  - Sensory disturbance [Unknown]
  - Gastritis [Recovering/Resolving]
  - Abdominal pain upper [Not Recovered/Not Resolved]
  - Arthralgia [Unknown]
  - Dry skin [Unknown]
  - Depressed mood [Unknown]
  - Decreased appetite [Unknown]
  - Dyspepsia [Recovering/Resolving]
  - Pain in extremity [Not Recovered/Not Resolved]
  - Pain [Unknown]
  - Arthritis [Unknown]
  - Photophobia [Unknown]
  - Headache [Recovering/Resolving]
  - Vomiting [Recovering/Resolving]
  - Frustration tolerance decreased [Unknown]
  - Stress [Not Recovered/Not Resolved]
  - Laryngitis [Unknown]
  - Influenza [Unknown]
  - Throat tightness [Unknown]
  - Pharyngitis [Unknown]
  - Thyroid disorder [Unknown]
  - Hypokinesia [Unknown]
  - Alopecia [Unknown]
  - Cough [Unknown]
  - Nausea [Unknown]
  - Ocular discomfort [Not Recovered/Not Resolved]
  - Asthenia [Unknown]
  - Hypersensitivity [Unknown]
  - Urticaria [Recovered/Resolved]
  - Pruritus [Unknown]
  - Scratch [Unknown]
  - Amnesia [Unknown]
  - Off label use [Unknown]
  - Discomfort [Recovering/Resolving]
